FAERS Safety Report 6190866-X (Version None)
Quarter: 2009Q2

REPORT INFORMATION
  Report Type: 
  Country: None (occurrence: None)
  Receive Date: 20090514
  Receipt Date: 20090511
  Transmission Date: 20091009
  Serious: Yes (Hospitalization, Other)
  Sender: FDA-Public Use
  Company Number: DE-ABBOTT-09P-062-0570697-00

PATIENT
  Sex: Female
  Weight: 53 kg

DRUGS (6)
  1. HUMIRA [Suspect]
     Indication: RHEUMATOID ARTHRITIS
     Route: 058
     Dates: start: 20080704, end: 20090302
  2. HUMIRA [Suspect]
     Route: 058
     Dates: start: 20090422
  3. IBUPROFEN [Concomitant]
     Indication: RHEUMATOID ARTHRITIS
  4. METHOTREXATE [Concomitant]
     Indication: RHEUMATOID ARTHRITIS
  5. ALENDRON [Concomitant]
     Indication: DRUG USE FOR UNKNOWN INDICATION
  6. CORTISONE [Concomitant]
     Indication: RHEUMATOID ARTHRITIS

REACTIONS (1)
  - ARTHRITIS INFECTIVE [None]
